FAERS Safety Report 10264950 (Version 1)
Quarter: 2014Q2

REPORT INFORMATION
  Report Type: Spontaneous
  Country: US (occurrence: US)
  Receive Date: 20140627
  Receipt Date: 20140627
  Transmission Date: 20141212
  Serious: Yes (Hospitalization)
  Sender: FDA-Public Use
  Company Number: US-PFIZER INC-2014177046

PATIENT
  Age: 65 Year
  Sex: Female
  Weight: 111.11 kg

DRUGS (1)
  1. LYRICA [Suspect]
     Indication: FIBROMYALGIA
     Dosage: UNK, 2X/DAY
     Route: 048
     Dates: start: 2010

REACTIONS (2)
  - Loss of consciousness [Unknown]
  - Fall [Unknown]
